FAERS Safety Report 7588567-6 (Version None)
Quarter: 2011Q2

REPORT INFORMATION
  Report Type: 
  Country: None (occurrence: None)
  Receive Date: 20110603
  Receipt Date: 20110317
  Transmission Date: 20111010
  Serious: Yes (Other)
  Sender: FDA-Public Use
  Company Number: 2011SP012253

PATIENT
  Sex: Female

DRUGS (2)
  1. SAPHRIS [Suspect]
     Indication: BIPOLAR II DISORDER
     Dosage: 10 MG;HS;SL
     Route: 060
     Dates: end: 20110301
  2. BENZODIAZEPINE [Concomitant]

REACTIONS (2)
  - INAPPROPRIATE SCHEDULE OF DRUG ADMINISTRATION [None]
  - CONVULSION [None]
